FAERS Safety Report 4443398-0 (Version None)
Quarter: 2004Q3

REPORT INFORMATION
  Report Type: 
  Country: None (occurrence: None)
  Receive Date: 20040901
  Receipt Date: 20040818
  Transmission Date: 20050211
  Serious: Yes (Death)
  Sender: FDA-Public Use
  Company Number: 2004AC00230

PATIENT

DRUGS (1)
  1. QUETIAPINE [Suspect]

REACTIONS (1)
  - OVERDOSE [None]
